FAERS Safety Report 8611837-7 (Version None)
Quarter: 2012Q3

REPORT INFORMATION
  Report Type: 
  Country: None (occurrence: None)
  Receive Date: 20120822
  Receipt Date: 20110926
  Transmission Date: 20120928
  Serious: Yes (Other)
  Sender: FDA-Public Use
  Company Number: PHEH2011US013184

PATIENT
  Sex: Female

DRUGS (3)
  1. SYNTHROID [Concomitant]
     Indication: THYROID DISORDER
     Dosage: 50 MG, UNK
  2. BISOPROLOL FUMARATE [Concomitant]
     Indication: BLOOD PRESSURE
     Dosage: 5 MG, UNK
  3. FEMARA [Suspect]
     Dosage: 2.5 MG, DAILY
     Route: 048

REACTIONS (7)
  - SJOGREN'S SYNDROME [None]
  - SWELLING [None]
  - OEDEMA PERIPHERAL [None]
  - FATIGUE [None]
  - SWOLLEN TONGUE [None]
  - DYSPNOEA [None]
  - ARTHRALGIA [None]
